FAERS Safety Report 11144289 (Version 4)
Quarter: 2015Q3

REPORT INFORMATION
  Report Type: Spontaneous
  Country: JP (occurrence: JP)
  Receive Date: 20150526
  Receipt Date: 20150710
  Transmission Date: 20151125
  Serious: Yes (Hospitalization, Other)
  Sender: FDA-Public Use
  Company Number: JP-ASTELLAS-2015JP010141

PATIENT
  Age: 47 Year
  Sex: Female
  Weight: 46 kg

DRUGS (13)
  1. PROGRAF [Interacting]
     Active Substance: TACROLIMUS\TACROLIMUS ANHYDROUS
     Dosage: UNK UNK, UNKNOWN FREQ.
     Route: 065
  2. PREDONINE [Concomitant]
     Active Substance: PREDNISOLONE\PREDNISOLONE ACETATE\PREDNISOLONE SODIUM SUCCINATE
     Route: 048
     Dates: start: 20150516
  3. RABEPRAZOLE [Concomitant]
     Active Substance: RABEPRAZOLE
     Indication: CHRONIC GASTRITIS
     Route: 048
  4. FEXOFENADINE HYDROCHLORIDE. [Concomitant]
     Active Substance: FEXOFENADINE HYDROCHLORIDE
     Indication: PRURITUS
     Route: 048
     Dates: end: 20150508
  5. TRIAZOLAM. [Concomitant]
     Active Substance: TRIAZOLAM
     Indication: INSOMNIA
     Dosage: 0.25 MG, ONCE DAILY
     Route: 048
     Dates: end: 20150508
  6. ACTEMRA [Concomitant]
     Active Substance: TOCILIZUMAB
     Indication: RHEUMATOID ARTHRITIS
     Route: 041
     Dates: end: 20150409
  7. KLARICID                           /00984601/ [Interacting]
     Active Substance: CLARITHROMYCIN
     Indication: CYSTITIS
     Dates: start: 201504, end: 201504
  8. KLARICID                           /00984601/ [Interacting]
     Active Substance: CLARITHROMYCIN
     Route: 048
     Dates: start: 20150430, end: 20150505
  9. PROGRAF [Suspect]
     Active Substance: TACROLIMUS\TACROLIMUS ANHYDROUS
     Indication: RHEUMATOID ARTHRITIS
     Route: 048
     Dates: start: 200411, end: 20150508
  10. REBAMIPIDE [Concomitant]
     Active Substance: REBAMIPIDE
     Indication: CHRONIC GASTRITIS
     Route: 048
     Dates: end: 20150508
  11. PREDONINE [Concomitant]
     Active Substance: PREDNISOLONE\PREDNISOLONE ACETATE\PREDNISOLONE SODIUM SUCCINATE
     Indication: RHEUMATOID ARTHRITIS
     Route: 048
     Dates: start: 200411, end: 20150515
  12. ALFAROL [Concomitant]
     Active Substance: ALFACALCIDOL
     Indication: OSTEOPOROSIS
     Dosage: 0.5 ?G, ONCE DAILY
     Route: 048
  13. LOXONIN [Concomitant]
     Active Substance: LOXOPROFEN SODIUM
     Indication: RHEUMATOID ARTHRITIS
     Route: 048
     Dates: end: 20150508

REACTIONS (4)
  - Drug interaction [Recovering/Resolving]
  - Intentional product use issue [Unknown]
  - Cystitis [Recovered/Resolved]
  - Post transplant distal limb syndrome [Recovering/Resolving]

NARRATIVE: CASE EVENT DATE: 200411
